FAERS Safety Report 9523057 (Version 3)
Quarter: 2013Q4

REPORT INFORMATION
  Report Type: Spontaneous
  Country: GB (occurrence: None)
  Receive Date: 20130821
  Receipt Date: 20131009
  Transmission Date: 20140711
  Serious: Yes (Other)
  Sender: FDA-Public Use
  Company Number: 2013037498

PATIENT
  Age: 23 Year
  Sex: Female

DRUGS (1)
  1. INTRAVENOUS IMMUNOGLOBULIN [Suspect]
     Indication: CHRONIC INFLAMMATORY DEMYELINATING POLYRADICULONEUROPATHY

REACTIONS (7)
  - Liver function test abnormal [None]
  - Haemolytic anaemia [None]
  - Off label use [None]
  - Headache [None]
  - Vision blurred [None]
  - Condition aggravated [None]
  - Papilloedema [None]
